FAERS Safety Report 16328236 (Version 1)
Quarter: 2019Q2

REPORT INFORMATION
  Report Type: Spontaneous
  Country: US (occurrence: US)
  Receive Date: 20190518
  Receipt Date: 20190518
  Transmission Date: 20190711
  Serious: No
  Sender: FDA-Public Use
  Company Number: US-CONCORDIA PHARMACEUTICALS INC.-GSH201810-003798

PATIENT
  Sex: Female

DRUGS (4)
  1. PLAQUENIL [Suspect]
     Active Substance: HYDROXYCHLOROQUINE SULFATE
  2. TETANUS ANTITOXIN [Suspect]
     Active Substance: TETANUS ANTITOXIN
  3. GOLD [Suspect]
     Active Substance: GOLD
  4. METHOTREXATE SODIUM. [Suspect]
     Active Substance: METHOTREXATE SODIUM
     Indication: RHEUMATOID ARTHRITIS
     Dates: start: 1992, end: 2017

REACTIONS (2)
  - Respiratory disorder [Unknown]
  - Drug hypersensitivity [Unknown]
